FAERS Safety Report 8880994 (Version 2)
Quarter: 2012Q4

REPORT INFORMATION
  Report Type: 
  Country: US (occurrence: US)
  Receive Date: 20121101
  Receipt Date: 20121213
  Transmission Date: 20130627
  Serious: Yes (Other)
  Sender: FDA-Public Use
  Company Number: US-PFIZER INC-2012268540

PATIENT
  Age: 53 Year
  Sex: Male
  Weight: 65.76 kg

DRUGS (15)
  1. VIAGRA [Suspect]
     Indication: ERECTILE DYSFUNCTION
     Dosage: 100 mg, as needed
     Route: 048
  2. VESICARE [Suspect]
     Dosage: 5 mg, 2x/day
  3. LISINOPRIL [Concomitant]
     Dosage: 20 mg, daily
  4. ALUMINIUM CHLORIDE [Concomitant]
     Dosage: UNK
  5. PEPCID [Concomitant]
     Indication: ACID REFLUX (OESOPHAGEAL)
     Dosage: 40 mg, daily
  6. PEPCID [Concomitant]
     Indication: GASTRIC DISORDER
  7. PROZAC [Concomitant]
     Indication: ANXIETY
     Dosage: 20 mg, daily
  8. SYNTHROID [Concomitant]
     Indication: THYROID DISORDER
     Dosage: 88 ug, daily
  9. COLACE [Concomitant]
     Indication: LAXATIVE SUPPORTIVE CARE
     Dosage: 200 mg, UNK
  10. KLONOPIN [Concomitant]
     Indication: ANXIETY
     Dosage: 2 mg, 2x/day
  11. PRILOSEC [Concomitant]
     Indication: ACID REFLUX (OESOPHAGEAL)
     Dosage: 40 mg, daily
  12. PRILOSEC [Concomitant]
     Indication: GASTRIC DISORDER
  13. MULTIVITAMINS [Concomitant]
     Dosage: UNK,daily
  14. SODIUM CHLORIDE [Concomitant]
     Indication: BLOOD SODIUM DECREASED
     Dosage: 1 g, daily
  15. VITAMIN D [Concomitant]
     Indication: VITAMIN D DECREASED
     Dosage: 2000 mg, daily

REACTIONS (2)
  - Neoplasm malignant [Recovered/Resolved]
  - Constipation [Unknown]
